FAERS Safety Report 10479186 (Version 1)
Quarter: 2014Q3

REPORT INFORMATION
  Report Type: Spontaneous
  Country: US (occurrence: US)
  Receive Date: 20140926
  Receipt Date: 20140926
  Transmission Date: 20150326
  Serious: Yes (Hospitalization)
  Sender: FDA-Public Use
  Company Number: US-B.I. PHARMACEUTICALS,INC./RIDGEFIELD-2014-BI-45429BP

PATIENT
  Sex: Female
  Weight: 54.4 kg

DRUGS (1)
  1. MICARDIS [Suspect]
     Active Substance: TELMISARTAN
     Indication: HYPERTENSION
     Dosage: 40 MG
     Route: 048
     Dates: start: 201207, end: 2014

REACTIONS (9)
  - Abdominal pain upper [Unknown]
  - Decreased appetite [Unknown]
  - Hepatic enzyme increased [Unknown]
  - Hepatitis B [Unknown]
  - Liver disorder [Unknown]
  - Jaundice [Unknown]
  - Blood bilirubin increased [Unknown]
  - Chromaturia [Unknown]
  - Nausea [Unknown]
